FAERS Safety Report 19292738 (Version 2)
Quarter: 2021Q2

REPORT INFORMATION
  Report Type: Spontaneous
  Country: US (occurrence: US)
  Receive Date: 20210524
  Receipt Date: 20210624
  Transmission Date: 20210717
  Serious: No
  Sender: FDA-Public Use
  Company Number: US-BAXTER-2021BAX012305

PATIENT
  Age: 61 Year
  Sex: Male

DRUGS (2)
  1. EXTRANEAL [Suspect]
     Active Substance: CALCIUM CHLORIDE\ICODEXTRIN\MAGNESIUM CHLORIDE\SODIUM CHLORIDE\SODIUM LACTATE
     Indication: PERITONEAL DIALYSIS
     Route: 033
     Dates: start: 2021, end: 20210514
  2. NYSTATIN. [Suspect]
     Active Substance: NYSTATIN
     Indication: PROPHYLAXIS
     Dosage: 100000 UNITS/MIL
     Route: 048
     Dates: start: 20210429, end: 20210511

REACTIONS (6)
  - Skin exfoliation [Recovered/Resolved]
  - Rash [Recovered/Resolved]
  - Tongue biting [Unknown]
  - Mouth ulceration [Recovered/Resolved]
  - Catheter site infection [Recovering/Resolving]
  - Tongue disorder [Unknown]

NARRATIVE: CASE EVENT DATE: 202104
